FAERS Safety Report 9860771 (Version 1)
Quarter: 2014Q1

REPORT INFORMATION
  Report Type: Spontaneous
  Country: US (occurrence: US)
  Receive Date: 20140202
  Receipt Date: 20140202
  Transmission Date: 20141002
  Serious: No
  Sender: FDA-Public Use
  Company Number: US-ALLERGAN-1301163US

PATIENT
  Age: 65 Year
  Sex: Female

DRUGS (6)
  1. BOTOX [Suspect]
     Indication: BLEPHAROSPASM
     Dosage: 200 UNITS, SINGLE
     Route: 030
     Dates: start: 20121205, end: 20121205
  2. HYDROCHLOORTHIAZIDE [Concomitant]
     Indication: HYPERTENSION
     Route: 048
  3. OMEPRAZOLE [Concomitant]
     Indication: GASTROOESOPHAGEAL REFLUX DISEASE
     Dosage: 20 MG, QD
     Route: 048
  4. MELOXICAM [Concomitant]
     Indication: ARTHRITIS
     Dosage: 50 MG, QD
     Route: 048
  5. TIZANIDINE [Concomitant]
     Indication: PRODUCT USED FOR UNKNOWN INDICATION
     Dosage: 4 MG, PRN
     Route: 048
  6. TRIAMCINE [Concomitant]
     Indication: PRURITUS
     Dosage: UNK UNK, PRN
     Route: 061

REACTIONS (2)
  - Incorrect dose administered [Unknown]
  - Drug ineffective [Unknown]
